FAERS Safety Report 15344613 (Version 2)
Quarter: 2021Q4

REPORT INFORMATION
  Report Type: Spontaneous
  Country: US (occurrence: US)
  Receive Date: 20180903
  Receipt Date: 20211229
  Transmission Date: 20220304
  Serious: No
  Sender: FDA-Public Use
  Company Number: US-SA-2018SA245772

PATIENT
  Sex: Female

DRUGS (1)
  1. CEREZYME [Suspect]
     Active Substance: IMIGLUCERASE
     Indication: Gaucher^s disease
     Dosage: 4400 U, QOW
     Route: 042
     Dates: start: 20160329

REACTIONS (1)
  - Inappropriate schedule of product administration [Unknown]
